FAERS Safety Report 6029534-3 (Version None)
Quarter: 2009Q1

REPORT INFORMATION
  Report Type: 
  Country: None (occurrence: None)
  Receive Date: 20090107
  Receipt Date: 20081231
  Transmission Date: 20090719
  Serious: Yes (Other)
  Sender: FDA-Public Use
  Company Number: US-JNJFOC-20090100357

PATIENT
  Age: 71 Year
  Sex: Male
  Weight: 65.77 kg

DRUGS (10)
  1. IBUPROFEN TABLETS [Suspect]
  2. IBUPROFEN TABLETS [Suspect]
     Indication: BACK PAIN
  3. MYLANTA MAXIMUM STRENGTH CHERRY [Suspect]
     Indication: ABDOMINAL DISTENSION
     Route: 048
  4. MYLANTA MAXIMUM STRENGTH CHERRY [Suspect]
     Indication: DYSPEPSIA
     Route: 048
  5. LORAZEPAM [Concomitant]
     Indication: INSOMNIA
  6. OMEPRAZOLE [Concomitant]
     Indication: DYSPEPSIA
     Dosage: FOR MANY YEARS
  7. SIMVASTATIN [Concomitant]
     Indication: BLOOD CHOLESTEROL INCREASED
  8. AVODART [Concomitant]
     Indication: HYPERTENSION
  9. COMBIGAN [Concomitant]
     Indication: GLAUCOMA
     Dosage: TO EACH EYE
     Route: 031
  10. AZOPT [Concomitant]
     Indication: GLAUCOMA
     Dosage: TO EACH EYE; FOR A FEW YEARS
     Route: 031

REACTIONS (1)
  - URTICARIA [None]
